FAERS Safety Report 6022456-3 (Version None)
Quarter: 2008Q4

REPORT INFORMATION
  Report Type: 
  Country: None (occurrence: None)
  Receive Date: 20081230
  Receipt Date: 20081229
  Transmission Date: 20090506
  Serious: Yes (Hospitalization)
  Sender: FDA-Public Use
  Company Number: US-BRISTOL-MYERS SQUIBB COMPANY-14456735

PATIENT
  Age: 64 Year
  Sex: Female

DRUGS (3)
  1. WARFARIN SODIUM [Suspect]
     Dosage: (10MG)FIRST TWO NIGHTS AND THEN {10MG
  2. HEPARIN SODIUM [Suspect]
     Route: 042
  3. ENOXAPARIN SODIUM [Suspect]
     Route: 058

REACTIONS (2)
  - HEPARIN-INDUCED THROMBOCYTOPENIA [None]
  - SKIN NECROSIS [None]
